FAERS Safety Report 20952314 (Version 2)
Quarter: 2022Q3

REPORT INFORMATION
  Report Type: Spontaneous
  Country: US (occurrence: US)
  Receive Date: 20220613
  Receipt Date: 20220818
  Transmission Date: 20221027
  Serious: No
  Sender: FDA-Public Use
  Company Number: US-PFIZER INC-202200822399

PATIENT
  Age: 80 Year
  Sex: Female

DRUGS (3)
  1. IBRANCE [Suspect]
     Active Substance: PALBOCICLIB
     Dosage: 125 MG
  2. MONISTAT [Concomitant]
     Active Substance: MICONAZOLE NITRATE
     Dosage: UNK
  3. DIFLUCAN [Concomitant]
     Active Substance: FLUCONAZOLE
     Dosage: UNK

REACTIONS (5)
  - Fungal infection [Unknown]
  - Urinary tract infection [Unknown]
  - Dysuria [Unknown]
  - Pain [Unknown]
  - Neoplasm progression [Unknown]
